FAERS Safety Report 12748740 (Version 1)
Quarter: 2016Q3

REPORT INFORMATION
  Report Type: Report from Study
  Country: US (occurrence: US)
  Receive Date: 20160915
  Receipt Date: 20160915
  Transmission Date: 20161109
  Serious: Yes (Hospitalization)
  Sender: FDA-Public Use
  Company Number: US-ROCHE-1827568

PATIENT
  Age: 77 Year
  Sex: Male
  Weight: 68.9 kg

DRUGS (1)
  1. OBINUTUZUMAB [Suspect]
     Active Substance: OBINUTUZUMAB
     Indication: CHRONIC LYMPHOCYTIC LEUKAEMIA
     Dosage: THE MOST RECENT DOSE PRIOR TO EVENT WAS 01/SEP/2016 (C1D8).
     Route: 042
     Dates: start: 20160818

REACTIONS (4)
  - Asthenia [Unknown]
  - Dizziness [Unknown]
  - Dehydration [Unknown]
  - Anaemia [Unknown]

NARRATIVE: CASE EVENT DATE: 20160904
